FAERS Safety Report 20116838 (Version 1)
Quarter: 2021Q4

REPORT INFORMATION
  Report Type: Spontaneous
  Country: US (occurrence: US)
  Receive Date: 20211126
  Receipt Date: 20211126
  Transmission Date: 20220303
  Serious: No
  Sender: FDA-Public Use
  Company Number: US-LUPIN PHARMACEUTICALS INC.-2021-22994

PATIENT
  Age: 3 Month
  Sex: Female

DRUGS (1)
  1. CEFDINIR [Interacting]
     Active Substance: CEFDINIR
     Indication: Urinary tract infection
     Dosage: UNK
     Route: 048

REACTIONS (3)
  - Faeces discoloured [Recovered/Resolved]
  - Drug interaction [Unknown]
  - Product use issue [Unknown]
